FAERS Safety Report 7117991-0 (Version None)
Quarter: 2010Q4

REPORT INFORMATION
  Report Type: 
  Country: None (occurrence: None)
  Receive Date: 20101123
  Receipt Date: 20101118
  Transmission Date: 20110411
  Serious: Yes (Other)
  Sender: FDA-Public Use
  Company Number: PHHY2010BR28660

PATIENT
  Age: 78 Year
  Sex: Male
  Weight: 84 kg

DRUGS (1)
  1. PARLODEL [Suspect]
     Indication: BLOOD PROLACTIN INCREASED
     Dosage: 2.5 MG, QD

REACTIONS (2)
  - SURGERY [None]
  - TENDON RUPTURE [None]
